FAERS Safety Report 12390741 (Version 2)
Quarter: 2016Q3

REPORT INFORMATION
  Report Type: Report from Study
  Country: CA (occurrence: CA)
  Receive Date: 20160520
  Receipt Date: 20160816
  Transmission Date: 20161109
  Serious: Yes (Death)
  Sender: FDA-Public Use
  Company Number: CA-HLSUS-2016-CA-000153

PATIENT
  Age: 74 Year
  Sex: Female
  Weight: 39.8 kg

DRUGS (14)
  1. ABENOL/TYLENOL [Concomitant]
     Dosage: 650 MG BID
     Route: 054
     Dates: start: 20151009
  2. REMERON [Concomitant]
     Active Substance: MIRTAZAPINE
     Dosage: 15 MG AT BEDTIME
     Dates: start: 20100503
  3. LORAZEPAM. [Concomitant]
     Active Substance: LORAZEPAM
     Dosage: PRN
     Route: 058
     Dates: start: 20160513
  4. METHOTRIMEPRAZINE [Concomitant]
     Active Substance: LEVOMEPROMAZINE
     Dosage: PRN
     Route: 058
     Dates: start: 20160513
  5. REQUIP [Concomitant]
     Active Substance: ROPINIROLE HYDROCHLORIDE
     Dosage: 1 TAB TID
     Dates: start: 20100503
  6. HYDROMORPHONE [Concomitant]
     Active Substance: HYDROMORPHONE
     Dosage: PRN
     Route: 058
     Dates: start: 20160513
  7. EFFEXOR XR [Concomitant]
     Active Substance: VENLAFAXINE HYDROCHLORIDE
     Dates: start: 20100503
  8. SENOKOT/ GLYSENNID [Concomitant]
     Dates: start: 20151002
  9. HALOPERIDOL. [Concomitant]
     Active Substance: HALOPERIDOL
     Dosage: PRN MAX DOSE 3 PER 24 HOURS
     Route: 058
     Dates: start: 20160513
  10. NIZORAL [Concomitant]
     Active Substance: KETOCONAZOLE
     Dosage: APPLY 3-5 MIN RINSE AND REPEAT
     Route: 061
     Dates: start: 20140915
  11. CLOZARIL [Suspect]
     Active Substance: CLOZAPINE
     Dosage: 1/2 TAB HS
     Route: 048
     Dates: start: 20030411, end: 20160519
  12. LAX-A-DAY/ RELAXA [Concomitant]
     Route: 048
     Dates: start: 20151021
  13. GLYCOPYRROLATE. [Concomitant]
     Active Substance: GLYCOPYRROLATE
     Dosage: PRN
     Route: 058
     Dates: start: 20160513
  14. SINEMET [Concomitant]
     Active Substance: CARBIDOPA\LEVODOPA
     Dosage: 1 TAB PO QID
     Route: 048
     Dates: start: 20130531

REACTIONS (1)
  - Parkinson^s disease [Fatal]
